FAERS Safety Report 15943420 (Version 3)
Quarter: 2019Q1

REPORT INFORMATION
  Report Type: Report from Study
  Country: IT (occurrence: IT)
  Receive Date: 20190210
  Receipt Date: 20190224
  Transmission Date: 20190417
  Serious: Yes (Hospitalization)
  Sender: FDA-Public Use
  Company Number: PHHO2019IT001584

PATIENT

DRUGS (8)
  1. POSACONAZOLE [Concomitant]
     Active Substance: POSACONAZOLE
     Indication: INFECTION PROPHYLAXIS
     Dosage: 300 MG, QD
     Route: 048
     Dates: start: 20181213, end: 20190129
  2. SIMVASTATINE [Concomitant]
     Active Substance: SIMVASTATIN
     Indication: METABOLIC SYNDROME
     Dosage: 20 MG, QD
     Route: 048
     Dates: end: 20190129
  3. PREDNISOLON [Concomitant]
     Active Substance: PREDNISOLONE
     Indication: PROPHYLAXIS
     Dosage: 4 MG, QD
     Route: 048
     Dates: start: 20181215
  4. ELTROMBOPAG [Suspect]
     Active Substance: ELTROMBOPAG
     Indication: APLASTIC ANAEMIA
     Dosage: 150 UNK, QD
     Route: 048
     Dates: start: 20181228, end: 20190129
  5. ANTITHYMOCYTE IMMUNOGLOBULIN [Suspect]
     Active Substance: THYMOCYTE IMMUNE GLOBULIN NOS
     Indication: APLASTIC ANAEMIA
     Dosage: 3000 MG, DAILY FOR 4 DAYS
     Route: 065
     Dates: start: 20181215, end: 20181218
  6. LEVOFLOXACINA [Concomitant]
     Active Substance: LEVOFLOXACIN
     Indication: INFECTION PROPHYLAXIS
     Dosage: 500, QD
     Route: 048
     Dates: end: 20190129
  7. CYCLOSPORINE A [Suspect]
     Active Substance: CYCLOSPORINE
     Indication: APLASTIC ANAEMIA
     Dosage: 100 UNK, QD
     Route: 048
     Dates: start: 20181215, end: 20190129
  8. ZANTIPRIDE [Concomitant]
     Active Substance: HYDROCHLOROTHIAZIDE\ZOFENOPRIL CALCIUM
     Indication: METABOLIC SYNDROME
     Dosage: 30 MG, QD
     Route: 048
     Dates: end: 20190129

REACTIONS (1)
  - Rhabdomyolysis [Recovered/Resolved]

NARRATIVE: CASE EVENT DATE: 20190131
